FAERS Safety Report 9396751 (Version 2)
Quarter: 2013Q3

REPORT INFORMATION
  Report Type: Report from Study
  Country: CA (occurrence: CA)
  Receive Date: 20130712
  Receipt Date: 20130718
  Transmission Date: 20140515
  Serious: Yes (Hospitalization)
  Sender: FDA-Public Use
  Company Number: CA-ROCHE-1196689

PATIENT
  Age: 76 Year
  Sex: Female
  Weight: 50 kg

DRUGS (33)
  1. ACTEMRA [Suspect]
     Indication: RHEUMATOID ARTHRITIS
     Route: 042
     Dates: start: 2009, end: 20130205
  2. ACTEMRA [Suspect]
     Route: 042
     Dates: start: 20101216
  3. ACTEMRA [Suspect]
     Route: 042
     Dates: start: 20110113
  4. ACTEMRA [Suspect]
     Route: 042
     Dates: start: 20110210
  5. ACTEMRA [Suspect]
     Route: 042
     Dates: start: 20110419
  6. ACTEMRA [Suspect]
     Route: 042
     Dates: start: 20110517
  7. ACTEMRA [Suspect]
     Route: 042
     Dates: start: 20110808
  8. ACTEMRA [Suspect]
     Route: 042
     Dates: start: 20111004
  9. ACTEMRA [Suspect]
     Route: 042
     Dates: start: 20111101
  10. ACTEMRA [Suspect]
     Route: 042
     Dates: start: 20111129
  11. ACTEMRA [Suspect]
     Route: 042
     Dates: start: 20111227
  12. ACTEMRA [Suspect]
     Route: 042
     Dates: start: 20120126
  13. ACTEMRA [Suspect]
     Route: 042
     Dates: start: 20120223
  14. ACTEMRA [Suspect]
     Route: 042
     Dates: start: 20120320
  15. ACTEMRA [Suspect]
     Route: 042
     Dates: start: 20120417
  16. ACTEMRA [Suspect]
     Route: 042
     Dates: start: 20130515
  17. ACTEMRA [Suspect]
     Route: 042
     Dates: start: 20130612
  18. ACTEMRA [Suspect]
     Route: 042
     Dates: start: 20120814
  19. ACTEMRA [Suspect]
     Route: 042
     Dates: start: 20120911
  20. ACTEMRA [Suspect]
     Route: 042
     Dates: start: 20121009
  21. ACTEMRA [Suspect]
     Route: 042
     Dates: start: 20121204
  22. PREDNISONE [Concomitant]
  23. METHOTREXATE [Concomitant]
  24. FOLIC ACID [Concomitant]
  25. NORVASC [Concomitant]
  26. LIPITOR [Concomitant]
  27. METFORMIN [Concomitant]
  28. ACETYLSALICYLIC ACID (ASA) [Concomitant]
  29. PREMARIN [Concomitant]
  30. TEMAZEPAM [Concomitant]
  31. CITALOPRAM [Concomitant]
  32. TYLENOL [Concomitant]
  33. NEXIUM [Concomitant]

REACTIONS (2)
  - Arthritis infective [Unknown]
  - Arthritis bacterial [Recovered/Resolved]
